FAERS Safety Report 7992274-5 (Version None)
Quarter: 2011Q4

REPORT INFORMATION
  Report Type: 
  Country: None (occurrence: None)
  Receive Date: 20111219
  Receipt Date: 20110622
  Transmission Date: 20120403
  Serious: No
  Sender: FDA-Public Use
  Company Number: US-ASTRAZENECA-2011SE38143

PATIENT
  Age: 79 Year
  Sex: Female
  Weight: 77.1 kg

DRUGS (3)
  1. CRESTOR [Suspect]
     Indication: BLOOD CHOLESTEROL INCREASED
     Route: 048
     Dates: start: 20110527, end: 20110613
  2. AVISTA [Concomitant]
  3. BLOOD PRESSURE MEDICINE [Concomitant]

REACTIONS (5)
  - RASH PUSTULAR [None]
  - HYPERAESTHESIA [None]
  - HYPOAESTHESIA [None]
  - RASH [None]
  - HYPERSENSITIVITY [None]
